FAERS Safety Report 25617587 (Version 1)
Quarter: 2025Q3

REPORT INFORMATION
  Report Type: Spontaneous
  Country: US (occurrence: US)
  Receive Date: 20250729
  Receipt Date: 20250729
  Transmission Date: 20251020
  Serious: No
  Sender: Haleon PLC
  Company Number: US-HALEON-2254847

PATIENT

DRUGS (5)
  1. ADVIL [Suspect]
     Active Substance: IBUPROFEN
     Indication: Discomfort
  2. ADVIL [Suspect]
     Active Substance: IBUPROFEN
     Indication: Inflammation
  3. ADVIL [Suspect]
     Active Substance: IBUPROFEN
     Indication: Nasopharyngitis
  4. ADVIL [Suspect]
     Active Substance: IBUPROFEN
     Indication: Dysmenorrhoea
  5. ADVIL [Suspect]
     Active Substance: IBUPROFEN
     Indication: Pain

REACTIONS (2)
  - Drug effective for unapproved indication [Unknown]
  - Product use in unapproved indication [Unknown]
